FAERS Safety Report 5587474-8 (Version None)
Quarter: 2008Q1

REPORT INFORMATION
  Report Type: 
  Country: None (occurrence: None)
  Receive Date: 20080110
  Receipt Date: 20080102
  Transmission Date: 20080703
  Serious: Yes (Hospitalization, Other)
  Sender: FDA-Public Use
  Company Number: ES-ABBOTT-07P-144-0421929-00

PATIENT
  Age: 22 Year
  Sex: Female

DRUGS (15)
  1. VALPROIC ACID [Suspect]
     Indication: DRUG USE FOR UNKNOWN INDICATION
     Route: 048
  2. ETHANOL [Suspect]
     Indication: DRUG USE FOR UNKNOWN INDICATION
     Dosage: 17% ETHANOL
     Route: 048
  3. ZALEPLON [Suspect]
     Indication: DRUG USE FOR UNKNOWN INDICATION
     Route: 048
  4. VALPROATE SODIUM [Concomitant]
     Indication: PERSONALITY DISORDER
  5. VALPROATE SODIUM [Concomitant]
     Indication: EPILEPSY
  6. MIRTAZAPINE [Concomitant]
     Indication: PERSONALITY DISORDER
  7. MIRTAZAPINE [Concomitant]
     Indication: EPILEPSY
  8. VENLAFAXINE RETARD [Concomitant]
     Indication: PERSONALITY DISORDER
  9. VENLAFAXINE RETARD [Concomitant]
     Indication: EPILEPSY
  10. FLURAZEPAM [Concomitant]
     Indication: PERSONALITY DISORDER
  11. FLURAZEPAM [Concomitant]
     Indication: EPILEPSY
  12. ZALEPLON [Concomitant]
     Indication: PERSONALITY DISORDER
  13. ZALEPLON [Concomitant]
     Indication: EPILEPSY
  14. CLORAZEPATE DIPOTASSIUM [Concomitant]
     Indication: PERSONALITY DISORDER
  15. CLORAZEPATE DIPOTASSIUM [Concomitant]
     Indication: EPILEPSY

REACTIONS (4)
  - DISORIENTATION [None]
  - INTENTIONAL OVERDOSE [None]
  - MYDRIASIS [None]
  - SOMNOLENCE [None]
